FAERS Safety Report 5053615-4 (Version None)
Quarter: 2006Q3

REPORT INFORMATION
  Report Type: 
  Country: None (occurrence: None)
  Receive Date: 20060718
  Receipt Date: 20050909
  Transmission Date: 20061208
  Serious: Yes (Hospitalization, Other)
  Sender: FDA-Public Use
  Company Number: PHRM2005FR02449

PATIENT
  Age: 32 Month
  Sex: Male

DRUGS (9)
  1. FUNGIZONE [Concomitant]
     Route: 048
     Dates: start: 20050903
  2. SOLUPRED [Concomitant]
     Dosage: 15 MG, BID
     Route: 048
     Dates: start: 20050903
  3. IMUREL [Concomitant]
     Dosage: 25 MG, QD
     Route: 048
     Dates: start: 20050831
  4. ASPIRIN [Concomitant]
     Dosage: 50 MG, QD
     Route: 048
     Dates: start: 20050903
  5. BACTRIM [Concomitant]
     Route: 048
     Dates: start: 20050903
  6. SODIUM BICARBONATE [Concomitant]
     Dates: start: 20050903
  7. NEORAL [Suspect]
     Indication: RENAL TRANSPLANT
     Dosage: 110 MG, BID
     Route: 048
     Dates: start: 20050819, end: 20050909
  8. SANDIMMUNE [Suspect]
     Indication: RENAL TRANSPLANT
     Route: 042
  9. SIMULECT [Suspect]
     Indication: RENAL TRANSPLANT
     Route: 042

REACTIONS (7)
  - CEREBROVASCULAR DISORDER [None]
  - CONVULSION [None]
  - HYPERTENSION [None]
  - INTENSIVE CARE [None]
  - INTUBATION [None]
  - LIFE SUPPORT [None]
  - NEUROTOXICITY [None]
